FAERS Safety Report 18796814 (Version 2)
Quarter: 2021Q2

REPORT INFORMATION
  Report Type: Report from Study
  Country: None (occurrence: US)
  Receive Date: 20210128
  Receipt Date: 20210427
  Transmission Date: 20210717
  Serious: Yes (Hospitalization)
  Sender: FDA-Public Use
  Company Number: US-ABBVIE-21K-163-3746264-00

PATIENT
  Age: 12 Year
  Sex: Female
  Weight: 37.23 kg

DRUGS (1)
  1. HUMIRA [Suspect]
     Active Substance: ADALIMUMAB
     Indication: CROHN^S DISEASE
     Dosage: CITRATE FREE
     Route: 058

REACTIONS (5)
  - Vitamin D deficiency [Not Recovered/Not Resolved]
  - Gastrointestinal inflammation [Unknown]
  - Dysphagia [Not Recovered/Not Resolved]
  - Crohn^s disease [Unknown]
  - Liver function test increased [Not Recovered/Not Resolved]

NARRATIVE: CASE EVENT DATE: 202010
